FAERS Safety Report 19935067 (Version 10)
Quarter: 2023Q2

REPORT INFORMATION
  Report Type: Report from Study
  Country: JP (occurrence: JP)
  Receive Date: 20211009
  Receipt Date: 20230525
  Transmission Date: 20230721
  Serious: Yes (Death, Hospitalization, Disabling)
  Sender: FDA-Public Use
  Company Number: JP-ABBVIE-21K-087-4108900-00

PATIENT
  Age: 14 Year
  Sex: Male
  Weight: 50 kg

DRUGS (47)
  1. VENCLEXTA [Suspect]
     Active Substance: VENETOCLAX
     Indication: Acute myeloid leukaemia
     Route: 048
     Dates: start: 20210409, end: 2021
  2. VENCLEXTA [Suspect]
     Active Substance: VENETOCLAX
     Indication: Acute myeloid leukaemia
     Dosage: 100 MILLIGRAM
     Route: 048
     Dates: start: 20210615
  3. VENCLEXTA [Suspect]
     Active Substance: VENETOCLAX
     Indication: Acute myeloid leukaemia
     Dosage: 200 MILLIGRAM
     Route: 048
     Dates: start: 20210616, end: 20210616
  4. VENCLEXTA [Suspect]
     Active Substance: VENETOCLAX
     Indication: Acute myeloid leukaemia
     Dosage: 400 MILLIGRAM
     Route: 048
     Dates: start: 20210706, end: 20210706
  5. GANCICLOVIR [Concomitant]
     Active Substance: GANCICLOVIR
     Indication: Infection prophylaxis
     Route: 050
  6. CIDOFOVIR [Suspect]
     Active Substance: CIDOFOVIR
     Indication: Adenovirus infection
     Dosage: DIHYDRATE
     Route: 065
  7. DAPTOMYCIN [Concomitant]
     Active Substance: DAPTOMYCIN
     Indication: Infection prophylaxis
     Route: 050
     Dates: start: 20210616
  8. VIDAZA [Suspect]
     Active Substance: AZACITIDINE
     Indication: Acute myeloid leukaemia
     Route: 050
     Dates: start: 20210409, end: 20210415
  9. NALDEMEDINE TOSYLATE [Concomitant]
     Active Substance: NALDEMEDINE TOSYLATE
     Indication: Product used for unknown indication
     Route: 048
  10. RAMOSETRON HYDROCHLORIDE [Concomitant]
     Active Substance: RAMOSETRON HYDROCHLORIDE
     Indication: Acute myeloid leukaemia
     Route: 050
     Dates: start: 20210409, end: 20210415
  11. MICAFUNGIN SODIUM [Concomitant]
     Active Substance: MICAFUNGIN SODIUM
     Indication: Acute myeloid leukaemia
     Route: 050
     Dates: start: 20210408
  12. PIPERACILLIN AND TAZOBACTAM [Concomitant]
     Active Substance: PIPERACILLIN SODIUM\TAZOBACTAM SODIUM
     Indication: Acute myeloid leukaemia
     Route: 050
     Dates: start: 20210408, end: 20210421
  13. ULINASTATIN [Concomitant]
     Active Substance: ULINASTATIN
     Indication: Infection prophylaxis
     Route: 050
  14. METHYLPREDNISOLONE SODIUM SUCCINATE [Concomitant]
     Active Substance: METHYLPREDNISOLONE SODIUM SUCCINATE
     Indication: Acute myeloid leukaemia
     Route: 050
     Dates: start: 20210409
  15. GASTER [Concomitant]
     Active Substance: FAMOTIDINE
     Indication: Acute myeloid leukaemia
     Route: 050
     Dates: start: 20210409
  16. ACYCLOVIR [Concomitant]
     Active Substance: ACYCLOVIR
     Indication: Acute myeloid leukaemia
     Route: 048
     Dates: start: 20210311, end: 20210415
  17. ACYCLOVIR [Concomitant]
     Active Substance: ACYCLOVIR
     Indication: Acute myeloid leukaemia
     Route: 050
     Dates: start: 20210412
  18. POLYETHYLENE GLYCOL [Concomitant]
     Active Substance: POLYETHYLENE GLYCOL
     Indication: Acute myeloid leukaemia
     Route: 050
     Dates: start: 20210413, end: 20210413
  19. HYDROXYZINE HYDROCHLORIDE [Concomitant]
     Active Substance: HYDROXYZINE HYDROCHLORIDE
     Indication: Acute myeloid leukaemia
     Route: 050
     Dates: start: 20210417, end: 20210417
  20. METHOTREXATE [Concomitant]
     Active Substance: METHOTREXATE
     Indication: Acute myeloid leukaemia
     Route: 050
     Dates: start: 20210419
  21. CYTARABINE [Concomitant]
     Active Substance: CYTARABINE
     Indication: Acute myeloid leukaemia
     Route: 050
     Dates: start: 20210419
  22. HYDROCORTISONE SODIUM SUCCINATE [Concomitant]
     Active Substance: HYDROCORTISONE SODIUM SUCCINATE
     Indication: Acute myeloid leukaemia
     Route: 050
     Dates: start: 20210419
  23. MIDAZOLAM [Concomitant]
     Active Substance: MIDAZOLAM
     Indication: Acute myeloid leukaemia
     Route: 050
     Dates: start: 20210419, end: 20210419
  24. PENTAZOCINE [Concomitant]
     Active Substance: PENTAZOCINE
     Indication: Acute myeloid leukaemia
     Route: 050
     Dates: start: 20210419, end: 20210419
  25. CAMOSTAT MESYLATE [Concomitant]
     Active Substance: CAMOSTAT MESYLATE
     Indication: Acute myeloid leukaemia
     Route: 048
     Dates: start: 20210324, end: 20210415
  26. MEROPENEM [Concomitant]
     Active Substance: MEROPENEM
     Indication: Acute myeloid leukaemia
     Route: 050
     Dates: start: 20210421
  27. TEICOPLANIN [Concomitant]
     Active Substance: TEICOPLANIN
     Indication: Acute myeloid leukaemia
     Route: 050
     Dates: start: 20210423
  28. PENTAMIDINE [Concomitant]
     Active Substance: PENTAMIDINE
     Indication: Acute myeloid leukaemia
     Route: 061
     Dates: start: 20210426, end: 20210426
  29. ACETAMINOPHEN [Concomitant]
     Active Substance: ACETAMINOPHEN
     Indication: Acute myeloid leukaemia
     Route: 050
     Dates: start: 20210505
  30. DEXTROSE\SODIUM CHLORIDE\SODIUM LACTATE [Concomitant]
     Active Substance: DEXTROSE\SODIUM CHLORIDE\SODIUM LACTATE
     Indication: Acute myeloid leukaemia
     Route: 050
     Dates: start: 20210408
  31. MAGNESIUM SULFATE [Concomitant]
     Active Substance: MAGNESIUM SULFATE
     Indication: Acute myeloid leukaemia
     Route: 050
     Dates: start: 20210408
  32. HEPARIN SODIUM [Concomitant]
     Active Substance: HEPARIN SODIUM
     Indication: Acute myeloid leukaemia
     Route: 050
     Dates: start: 20210408
  33. POTASSIUM CHLORIDE [Concomitant]
     Active Substance: POTASSIUM CHLORIDE
     Indication: Acute myeloid leukaemia
     Route: 050
     Dates: start: 20210415
  34. ALLOPURINOL [Concomitant]
     Active Substance: ALLOPURINOL
     Indication: Acute myeloid leukaemia
     Route: 048
     Dates: start: 20210408
  35. LETERMOVIR [Concomitant]
     Active Substance: LETERMOVIR
     Indication: Acute myeloid leukaemia
     Route: 048
     Dates: start: 20210327, end: 20210415
  36. PREDNISOLONE [Concomitant]
     Active Substance: PREDNISOLONE
     Indication: Acute myeloid leukaemia
     Route: 048
     Dates: start: 20210408, end: 20210415
  37. URSODIOL [Concomitant]
     Active Substance: URSODIOL
     Indication: Acute myeloid leukaemia
     Route: 048
     Dates: start: 20200412
  38. FAMOTIDINE [Concomitant]
     Active Substance: FAMOTIDINE
     Indication: Acute myeloid leukaemia
     Route: 048
     Dates: start: 20210327, end: 20210415
  39. FAMOTIDINE [Concomitant]
     Active Substance: FAMOTIDINE
     Indication: Acute myeloid leukaemia
     Route: 050
  40. BETAMETHASONE BUTYRATE PROPIONATE [Concomitant]
     Active Substance: BETAMETHASONE BUTYRATE PROPIONATE
     Indication: Acute myeloid leukaemia
     Route: 061
     Dates: start: 20210410
  41. HEPARINOID [Concomitant]
     Indication: Acute myeloid leukaemia
     Route: 061
     Dates: start: 20210410
  42. 1,4-DIMETHYL-7-ISOPROPYLAZULENE [Concomitant]
     Indication: Acute myeloid leukaemia
     Route: 061
     Dates: start: 20210422
  43. OLANZAPINE [Concomitant]
     Active Substance: OLANZAPINE
     Indication: Acute myeloid leukaemia
     Route: 048
     Dates: start: 20210417
  44. LOXOPROFEN SODIUM DIHYDRATE [Concomitant]
     Active Substance: LOXOPROFEN SODIUM DIHYDRATE
     Indication: Acute myeloid leukaemia
     Route: 062
     Dates: start: 20210425
  45. KETOPROFEN [Concomitant]
     Active Substance: KETOPROFEN
     Indication: Acute myeloid leukaemia
     Route: 062
     Dates: start: 20210425
  46. WHITE PETROLATUM [Concomitant]
     Active Substance: PETROLATUM
     Indication: Acute myeloid leukaemia
     Route: 061
     Dates: start: 20210428
  47. AZACITIDINE [Concomitant]
     Active Substance: AZACITIDINE
     Indication: Acute myeloid leukaemia
     Route: 065

REACTIONS (11)
  - Acute myeloid leukaemia [Fatal]
  - Acute graft versus host disease [Unknown]
  - Pancreatitis acute [Recovered/Resolved with Sequelae]
  - Polyomavirus-associated nephropathy [Unknown]
  - Renal impairment [Not Recovered/Not Resolved]
  - Device related sepsis [Recovering/Resolving]
  - Biliary colic [Not Recovered/Not Resolved]
  - Haemoglobin decreased [Not Recovered/Not Resolved]
  - Platelet count decreased [Not Recovered/Not Resolved]
  - White blood cell count decreased [Recovering/Resolving]
  - Candida sepsis [Not Recovered/Not Resolved]

NARRATIVE: CASE EVENT DATE: 20210409
